FAERS Safety Report 14294237 (Version 3)
Quarter: 2019Q2

REPORT INFORMATION
  Report Type: Spontaneous
  Country: DE (occurrence: DE)
  Receive Date: 20171217
  Receipt Date: 20190528
  Transmission Date: 20190711
  Serious: Yes (Life-Threatening, Hospitalization, Other)
  Sender: FDA-Public Use
  Company Number: PHHY2017DE123075

PATIENT
  Age: 48 Year
  Sex: Female
  Weight: 65 kg

DRUGS (1)
  1. GILENYA [Suspect]
     Active Substance: FINGOLIMOD HYDROCHLORIDE
     Indication: RELAPSING-REMITTING MULTIPLE SCLEROSIS
     Dosage: 0.5 MG, QD
     Route: 048
     Dates: start: 2010, end: 20170816

REACTIONS (27)
  - Cognitive disorder [Recovering/Resolving]
  - Incontinence [Unknown]
  - Bacteriuria [Unknown]
  - Lymphocyte count decreased [Unknown]
  - Platelet count increased [Unknown]
  - Hypercholesterolaemia [Unknown]
  - Mean cell volume increased [Unknown]
  - Blood sodium increased [Unknown]
  - Dysarthria [Recovering/Resolving]
  - Hemiparesis [Recovering/Resolving]
  - Blood cholesterol increased [Unknown]
  - Visual acuity reduced [Unknown]
  - Mean cell haemoglobin increased [Unknown]
  - Immune reconstitution inflammatory syndrome [Recovering/Resolving]
  - Blood fibrinogen increased [Unknown]
  - Leukocyturia [Unknown]
  - Tinea versicolour [Recovering/Resolving]
  - Psychomotor retardation [Unknown]
  - JC polyomavirus test positive [Recovered/Resolved]
  - Speech disorder [Unknown]
  - Lymphocyte percentage decreased [Unknown]
  - Gamma-glutamyltransferase increased [Unknown]
  - Progressive multifocal leukoencephalopathy [Recovering/Resolving]
  - Gait disturbance [Recovering/Resolving]
  - Neutrophil percentage increased [Unknown]
  - Alanine aminotransferase increased [Unknown]
  - Multiple sclerosis relapse [Unknown]

NARRATIVE: CASE EVENT DATE: 201707
